FAERS Safety Report 6612749-0 (Version None)
Quarter: 2010Q1

REPORT INFORMATION
  Report Type: 
  Country: None (occurrence: None)
  Receive Date: 20100303
  Receipt Date: 20100219
  Transmission Date: 20100710
  Serious: Yes (Other)
  Sender: FDA-Public Use
  Company Number: JP-PFIZER INC-2010019850

PATIENT
  Age: 1 Year
  Sex: Male
  Weight: 10 kg

DRUGS (1)
  1. ZITHROMAX [Suspect]
     Dosage: 100 MG/DAY
     Route: 048
     Dates: start: 20100210

REACTIONS (1)
  - FAECES DISCOLOURED [None]
